FAERS Safety Report 8038813-X (Version None)
Quarter: 2012Q1

REPORT INFORMATION
  Report Type: 
  Country: None (occurrence: None)
  Receive Date: 20120111
  Receipt Date: 20111206
  Transmission Date: 20120608
  Serious: No
  Sender: FDA-Public Use
  Company Number: US-AMGEN-USASP2011061388

PATIENT
  Age: 56 Year
  Sex: Male
  Weight: 70.29 kg

DRUGS (4)
  1. PLAQUENIL [Concomitant]
     Dosage: 200 MG, UNK
  2. ENBREL [Suspect]
     Indication: RHEUMATOID ARTHRITIS
     Dosage: 50 MG, QWK
     Dates: start: 20110201
  3. FOLIC ACID [Concomitant]
     Dosage: 1 MG, UNK
  4. METHOTREXATE [Concomitant]
     Dosage: 2.5 MG, UNK

REACTIONS (4)
  - ARTHRALGIA [None]
  - RHEUMATOID ARTHRITIS [None]
  - DEPRESSED MOOD [None]
  - OEDEMA PERIPHERAL [None]
